FAERS Safety Report 7332762-8 (Version None)
Quarter: 2011Q1

REPORT INFORMATION
  Report Type: 
  Country: None (occurrence: None)
  Receive Date: 20110304
  Receipt Date: 20101119
  Transmission Date: 20110831
  Serious: Yes (Hospitalization, Other)
  Sender: FDA-Public Use
  Company Number: US-BAYER-201034591NA

PATIENT
  Sex: Female
  Weight: 60.317 kg

DRUGS (19)
  1. PROMETHAZINE [Concomitant]
     Dosage: UNK
     Dates: start: 20060925
  2. UNCODEABLE ^UNCLASSIFIABLE^ [Concomitant]
  3. SERTRALINE [Concomitant]
  4. PRILOSEC [Concomitant]
  5. FERROUS SULFATE TAB [Concomitant]
     Dosage: UNK
     Dates: start: 20050629
  6. BELLADONNA AND PHENOBARBITONE [Concomitant]
     Dosage: UNK
     Dates: start: 20060925
  7. OMACOR [Concomitant]
  8. YASMIN [Suspect]
     Indication: PRODUCT USED FOR UNKNOWN INDICATION
     Dates: start: 20070501
  9. OMEPRAZOLE [Concomitant]
     Dosage: UNK
     Dates: start: 20060925
  10. XOPENEX [Concomitant]
  11. ZOLOFT [Concomitant]
     Indication: DEPRESSION
  12. SINGULAIR [Concomitant]
  13. YAZ [Suspect]
     Indication: ORAL CONTRACEPTION
     Dosage: UNK
     Dates: start: 20080201
  14. ADVIL LIQUI-GELS [Concomitant]
  15. ALEVE [Concomitant]
  16. UNCODEABLE ^UNCLASSIFIABLE^ [Concomitant]
     Dosage: UNK
     Dates: start: 20050629
  17. UNCODEABLE ^UNCLASSIFIABLE^ [Concomitant]
  18. MULTI-VITAMINS [Concomitant]
  19. UNCODEABLE ^UNCLASSIFIABLE^ [Concomitant]

REACTIONS (8)
  - PAIN [None]
  - PROCEDURAL PAIN [None]
  - BILIARY DYSKINESIA [None]
  - WEIGHT INCREASED [None]
  - GALLBLADDER NON-FUNCTIONING [None]
  - NAUSEA [None]
  - ABDOMINAL DISTENSION [None]
  - ABDOMINAL PAIN UPPER [None]
